FAERS Safety Report 8799486 (Version 1)
Quarter: 2012Q4

REPORT INFORMATION
  Report Type: Spontaneous
  Country: DK (occurrence: None)
  Receive Date: 20120914
  Receipt Date: 20120914
  Transmission Date: 20130627
  Serious: Yes (Life-Threatening, Hospitalization)
  Sender: FDA-Public Use
  Company Number: 2012MA010904

PATIENT
  Age: 40 Year
  Sex: Female

DRUGS (9)
  1. FLUOXETINE [Suspect]
     Indication: DEPRESSION
     Route: 048
     Dates: start: 20020801
  2. DOSULEPIN [Suspect]
     Indication: DEPRESSION
     Route: 048
     Dates: start: 20050801, end: 20120813
  3. ROBAXIN [Suspect]
     Indication: BACK PAIN
     Route: 048
     Dates: start: 20120806, end: 20120811
  4. LANZOPRAZOLE [Concomitant]
  5. NAPROXEN [Concomitant]
  6. TRAMADOL [Concomitant]
  7. ORAMORPH [Concomitant]
  8. GABAPENTIN [Concomitant]
  9. PARACETAMIOL [Concomitant]

REACTIONS (7)
  - Confusional state [None]
  - Depressed level of consciousness [None]
  - Pyrexia [None]
  - Chills [None]
  - Convulsion [None]
  - Blood sodium increased [None]
  - Metabolic acidosis [None]
